FAERS Safety Report 8221277-0 (Version None)
Quarter: 2012Q1

REPORT INFORMATION
  Report Type: 
  Country: None (occurrence: None)
  Receive Date: 20120320
  Receipt Date: 20120313
  Transmission Date: 20120608
  Serious: Yes (Other)
  Sender: FDA-Public Use
  Company Number: PHHY2012DE022666

PATIENT
  Sex: Female

DRUGS (3)
  1. TRILEPTAL [Suspect]
     Indication: EPILEPSY
     Dosage: 2400 MG/DAY
     Route: 048
  2. KEPPRA [Suspect]
     Indication: EPILEPSY
     Dosage: 2000 MG/DAY
     Route: 048
  3. TOPAMAX [Suspect]
     Indication: EPILEPSY
     Dosage: 100 MG/DAY
     Route: 048

REACTIONS (5)
  - ULTRASOUND DOPPLER ABNORMAL [None]
  - CONVULSION [None]
  - PREMATURE LABOUR [None]
  - MATERNAL EXPOSURE DURING PREGNANCY [None]
  - PLACENTAL DISORDER [None]
